FAERS Safety Report 7610633-7 (Version None)
Quarter: 2011Q3

REPORT INFORMATION
  Report Type: 
  Country: None (occurrence: None)
  Receive Date: 20110715
  Receipt Date: 20110705
  Transmission Date: 20111222
  Serious: Yes (Hospitalization, Other)
  Sender: FDA-Public Use
  Company Number: US-BAYER-201022792NA

PATIENT
  Age: 31 Year
  Sex: Female

DRUGS (10)
  1. FIORICET [Concomitant]
     Indication: MIGRAINE
  2. METFORMIN HCL [Concomitant]
  3. ZOLOFT [Concomitant]
     Dosage: DAILY DOSE 50 MG
  4. BETASERON [Suspect]
     Dosage: UNK
     Route: 058
     Dates: start: 20101210, end: 20110315
  5. HYDROMORPHONE HCL [Concomitant]
  6. DEPAKOTE [Concomitant]
     Dosage: DAILY DOSE 250 MG
  7. BETASERON [Suspect]
     Indication: RELAPSING-REMITTING MULTIPLE SCLEROSIS
     Dosage: 2 MIU, QOD
     Route: 058
     Dates: start: 20100422, end: 20101203
  8. LOVASTATIN [Concomitant]
  9. CITALOPRAM HYDROBROMIDE [Concomitant]
     Dosage: DAILY DOSE 20 MG
  10. LORAZEPAM [Concomitant]

REACTIONS (10)
  - FATIGUE [None]
  - LOSS OF CONSCIOUSNESS [None]
  - MIGRAINE [None]
  - THINKING ABNORMAL [None]
  - ASTHENOPIA [None]
  - DRUG INTOLERANCE [None]
  - INJECTION SITE RASH [None]
  - HEADACHE [None]
  - SELF-INJURIOUS IDEATION [None]
  - ASTHENIA [None]
